FAERS Safety Report 17009285 (Version 2)
Quarter: 2020Q3

REPORT INFORMATION
  Report Type: Report from Study
  Country: JP (occurrence: JP)
  Receive Date: 20191108
  Receipt Date: 20200720
  Transmission Date: 20201102
  Serious: Yes (Other)
  Sender: FDA-Public Use
  Company Number: JP-PFIZER INC-2019481203

PATIENT

DRUGS (1)
  1. MEDROXYPROGESTERONE ACETATE. [Suspect]
     Active Substance: MEDROXYPROGESTERONE ACETATE
     Indication: BREAST CANCER
     Dosage: 800 MG, DAILY (6 MONTHS)
     Route: 048

REACTIONS (2)
  - Hepatotoxicity [Unknown]
  - Chronic hepatitis [Unknown]
